FAERS Safety Report 5063259-6 (Version None)
Quarter: 2006Q3

REPORT INFORMATION
  Report Type: 
  Country: None (occurrence: None)
  Receive Date: 20060724
  Receipt Date: 20060724
  Transmission Date: 20061208
  Serious: Yes (Disabling, Other)
  Sender: FDA-Public Use
  Company Number: None

PATIENT
  Sex: Female
  Weight: 108.8633 kg

DRUGS (2)
  1. AMBIEN [Suspect]
     Indication: DIABETES MELLITUS
     Dosage: 10 MG X 2 BEDTIME PO
     Route: 048
     Dates: start: 20040401, end: 20060601
  2. SEROQUEL [Suspect]
     Indication: HYPERTENSION
     Dosage: 200 MG BEDTIME PO
     Route: 048
     Dates: start: 20050801, end: 20060301

REACTIONS (9)
  - ACTIVITIES OF DAILY LIVING IMPAIRED [None]
  - AMNESIA [None]
  - DIABETES MELLITUS [None]
  - DISEASE RECURRENCE [None]
  - DRUG INEFFECTIVE [None]
  - HYPERTENSION [None]
  - INSOMNIA [None]
  - PERFORMANCE STATUS DECREASED [None]
  - WEIGHT INCREASED [None]
